FAERS Safety Report 14275857 (Version 2)
Quarter: 2018Q1

REPORT INFORMATION
  Report Type: Spontaneous
  Country: US (occurrence: US)
  Receive Date: 20171212
  Receipt Date: 20180123
  Transmission Date: 20180508
  Serious: Yes (Hospitalization, Other)
  Sender: FDA-Public Use
  Company Number: US-JNJFOC-20171208871

PATIENT
  Sex: Male

DRUGS (2)
  1. REMICADE [Suspect]
     Active Substance: INFLIXIMAB
     Indication: OCULAR SARCOIDOSIS
     Dosage: SECOND LOADING DOSE
     Route: 042
     Dates: start: 20171024
  2. REMICADE [Suspect]
     Active Substance: INFLIXIMAB
     Indication: OCULAR SARCOIDOSIS
     Route: 042
     Dates: start: 2017

REACTIONS (5)
  - Product use in unapproved indication [Unknown]
  - Maculopathy [Unknown]
  - Endophthalmitis [Recovered/Resolved]
  - Hospitalisation [Unknown]
  - Off label use [Unknown]

NARRATIVE: CASE EVENT DATE: 2017
